FAERS Safety Report 13472606 (Version 5)
Quarter: 2017Q4

REPORT INFORMATION
  Report Type: Spontaneous
  Country: JP (occurrence: JP)
  Receive Date: 20170424
  Receipt Date: 20171226
  Transmission Date: 20180320
  Serious: Yes (Death, Other)
  Sender: FDA-Public Use
  Company Number: JP-009507513-1704JPN001577J

PATIENT
  Age: 70 Year
  Sex: Male
  Weight: 47 kg

DRUGS (6)
  1. LOSARTAN K [Concomitant]
     Active Substance: LOSARTAN POTASSIUM
     Dosage: 25 MG, QD
     Route: 048
  2. CYMBALTA [Concomitant]
     Active Substance: DULOXETINE HYDROCHLORIDE
     Dosage: 20 MG, QD
     Route: 048
  3. BISOPROLOL FUMARATE. [Concomitant]
     Active Substance: BISOPROLOL FUMARATE
     Dosage: 2.5 MG, QD
     Route: 048
  4. NITROPEN [Concomitant]
     Active Substance: NITROGLYCERIN
     Indication: PARTIAL SEIZURES
     Dosage: 1 DF, PRN
     Route: 060
  5. BEPRICOR [Concomitant]
     Active Substance: BEPRIDIL
     Dosage: UNK
     Route: 048
  6. KEYTRUDA [Suspect]
     Active Substance: PEMBROLIZUMAB
     Indication: LUNG ADENOCARCINOMA STAGE IV
     Dosage: 200 MG, Q3W
     Route: 041
     Dates: start: 20170330, end: 20170330

REACTIONS (4)
  - Interstitial lung disease [Fatal]
  - Ventricular tachycardia [Fatal]
  - Myocarditis [Fatal]
  - Ventricular fibrillation [Fatal]

NARRATIVE: CASE EVENT DATE: 20170410
